FAERS Safety Report 17497133 (Version 1)
Quarter: 2020Q1

REPORT INFORMATION
  Report Type: Spontaneous
  Country: US (occurrence: US)
  Receive Date: 20200304
  Receipt Date: 20200304
  Transmission Date: 20200409
  Serious: Yes (Other)
  Sender: FDA-Public Use
  Company Number: None

PATIENT
  Age: 11 Month
  Sex: Male

DRUGS (1)
  1. STYE [Suspect]
     Active Substance: MINERAL OIL\PETROLATUM
     Dates: start: 20200119, end: 20200221

REACTIONS (1)
  - Product residue present [None]
